FAERS Safety Report 9971207 (Version 1)
Quarter: 2014Q1

REPORT INFORMATION
  Report Type: Report from Study
  Country: US (occurrence: US)
  Receive Date: 20140306
  Receipt Date: 20140306
  Transmission Date: 20141002
  Serious: No
  Sender: FDA-Public Use
  Company Number: US-ABBVIE-13P-163-1151909-00

PATIENT
  Age: 27 Year
  Sex: Female

DRUGS (11)
  1. HUMIRA [Suspect]
     Indication: RHEUMATOID ARTHRITIS
     Dates: start: 20130812
  2. PREDNISONE [Concomitant]
     Indication: PRODUCT USED FOR UNKNOWN INDICATION
  3. METHOTREXATE [Concomitant]
     Indication: PRODUCT USED FOR UNKNOWN INDICATION
     Dosage: 8 TABLETS WEEKLY
  4. GABAPENTIN [Concomitant]
     Indication: PRODUCT USED FOR UNKNOWN INDICATION
     Dosage: 2 TABLETS DAILY
  5. TRAMADOL [Concomitant]
     Indication: PAIN
  6. DILAUDID [Concomitant]
     Indication: PAIN
  7. XANAX [Concomitant]
     Indication: ANXIETY
  8. MELOXICAM [Concomitant]
     Indication: RHEUMATOID ARTHRITIS
  9. TRAZODONE [Concomitant]
     Indication: PAIN
  10. FOLIC ACID [Concomitant]
     Indication: PAIN
  11. CALCIUM [Concomitant]
     Indication: PAIN

REACTIONS (2)
  - Drug ineffective [Not Recovered/Not Resolved]
  - Musculoskeletal pain [Not Recovered/Not Resolved]
